FAERS Safety Report 9295428 (Version 1)
Quarter: 2013Q1

REPORT INFORMATION
  Report Type: Spontaneous
  Country: US (occurrence: None)
  Receive Date: 20121227
  Receipt Date: 20121227
  Transmission Date: 20140127
  Serious: Yes (Hospitalization)
  Sender: FDA-Public Use
  Company Number: PHEH2011US008982

PATIENT
  Age: 36 Year
  Sex: Female
  Weight: 82.1 kg

DRUGS (13)
  1. EXJADE [Suspect]
     Indication: SICKLE CELL ANAEMIA WITH CRISIS
     Route: 048
     Dates: start: 20071112
  2. FOLIC ACID [Concomitant]
  3. FOSAMAX [Concomitant]
  4. REGLAN [Concomitant]
  5. NEURONTIN [Concomitant]
  6. MORPHINE [Concomitant]
  7. NEXIUM [Concomitant]
  8. DILAUDID [Concomitant]
  9. COUMADIN [Concomitant]
  10. ATIVAN [Concomitant]
  11. PHENERGAN [Concomitant]
  12. LISINOPRIL [Concomitant]
  13. DOMPERIDONE [Concomitant]

REACTIONS (4)
  - Sickle cell anaemia with crisis [None]
  - Pain [None]
  - Vomiting [None]
  - Nausea [None]
